FAERS Safety Report 9729882 (Version 3)
Quarter: 2014Q3

REPORT INFORMATION
  Report Type: Report from Study
  Country: US (occurrence: US)
  Receive Date: 20131204
  Receipt Date: 20140814
  Transmission Date: 20150326
  Serious: Yes (Other)
  Sender: FDA-Public Use
  Company Number: US-ACTELION-A-US2013-91900

PATIENT
  Age: 52 Year
  Sex: Female

DRUGS (2)
  1. TRACLEER [Suspect]
     Active Substance: BOSENTAN\BOSENTAN MONOHYDRATE
     Indication: PULMONARY ARTERIAL HYPERTENSION
     Dosage: UNK
     Route: 048
  2. TYVASO [Concomitant]
     Active Substance: TREPROSTINIL

REACTIONS (2)
  - Drug dose omission [Unknown]
  - Breast cancer [Unknown]
